FAERS Safety Report 6246084-X (Version None)
Quarter: 2009Q2

REPORT INFORMATION
  Report Type: 
  Country: None (occurrence: None)
  Receive Date: 20090626
  Receipt Date: 20090205
  Transmission Date: 20091009
  Serious: No
  Sender: FDA-Public Use
  Company Number: A0767135A

PATIENT
  Sex: Male

DRUGS (4)
  1. IMITREX [Suspect]
     Indication: MIGRAINE
     Route: 048
     Dates: start: 20080101
  2. ZOLOFT [Suspect]
     Indication: ANXIETY
     Dosage: 75MG PER DAY
     Route: 048
     Dates: start: 20080101
  3. CLONAZEPAM [Concomitant]
  4. WELLBUTRIN [Concomitant]

REACTIONS (1)
  - EXTRASYSTOLES [None]
